FAERS Safety Report 7327096-1 (Version None)
Quarter: 2011Q1

REPORT INFORMATION
  Report Type: 
  Country: None (occurrence: None)
  Receive Date: 20110302
  Receipt Date: 20110224
  Transmission Date: 20110831
  Serious: Yes (Death, Congenital Anomaly)
  Sender: FDA-Public Use
  Company Number: FR-GILEAD-2010-0031764

PATIENT
  Weight: 1.65 kg

DRUGS (6)
  1. TRUVADA [Suspect]
     Indication: HIV INFECTION
     Route: 064
     Dates: start: 20070101, end: 20100127
  2. ASPEGIC 325 [Suspect]
     Route: 064
     Dates: start: 20100319, end: 20100409
  3. KALETRA [Suspect]
     Route: 064
     Dates: start: 20070101
  4. COMBIVIR [Suspect]
     Route: 064
     Dates: start: 20100127
  5. GUTRON [Suspect]
     Route: 064
     Dates: start: 20091214, end: 20100127
  6. LYRICA [Suspect]
     Route: 064
     Dates: start: 20091214, end: 20100127

REACTIONS (3)
  - HYDROCEPHALUS [None]
  - CEREBELLAR HYPOPLASIA [None]
  - MATERNAL DRUGS AFFECTING FOETUS [None]
